FAERS Safety Report 18149934 (Version 1)
Quarter: 2020Q3

REPORT INFORMATION
  Report Type: Spontaneous
  Country: US (occurrence: US)
  Receive Date: 20200813
  Receipt Date: 20200813
  Transmission Date: 20201103
  Serious: No
  Sender: FDA-Public Use
  Company Number: None

PATIENT
  Age: 45 Year
  Sex: Female
  Weight: 88.45 kg

DRUGS (2)
  1. ALARIS INFUSION PUMP [Suspect]
     Active Substance: DEVICE
  2. POTASSIUM CHLORIDE. [Suspect]
     Active Substance: POTASSIUM CHLORIDE

REACTIONS (1)
  - Device infusion issue [None]

NARRATIVE: CASE EVENT DATE: 20200802
